FAERS Safety Report 5607385-9 (Version None)
Quarter: 2008Q1

REPORT INFORMATION
  Report Type: 
  Country: None (occurrence: None)
  Receive Date: 20080128
  Receipt Date: 20080128
  Transmission Date: 20080703
  Serious: Yes (Hospitalization)
  Sender: FDA-Public Use
  Company Number: None

PATIENT
  Sex: Female

DRUGS (5)
  1. CETUXIMAB [Suspect]
     Indication: PANCREATIC CARCINOMA
     Dosage: 385MG  IV
     Route: 042
     Dates: start: 20070911
  2. OXALIPLATIN [Suspect]
     Indication: PANCREATIC CARCINOMA
     Dosage: 1540 IV
     Route: 042
     Dates: start: 20070912
  3. GEMCITABINE [Suspect]
     Dosage: 154MG IV
     Route: 042
  4. DILAUDID [Concomitant]
  5. NEXIUM [Concomitant]

REACTIONS (6)
  - BLOOD CREATININE INCREASED [None]
  - CHILLS [None]
  - DIARRHOEA [None]
  - INFUSION RELATED REACTION [None]
  - PYREXIA [None]
  - RASH [None]
